FAERS Safety Report 23237756 (Version 2)
Quarter: 2024Q1

REPORT INFORMATION
  Report Type: Report from Study
  Country: GB (occurrence: GB)
  Receive Date: 20231128
  Receipt Date: 20240216
  Transmission Date: 20240410
  Serious: Yes (Hospitalization)
  Sender: FDA-Public Use
  Company Number: GB-ABBVIE-5506615

PATIENT
  Sex: Female

DRUGS (3)
  1. CARBIDOPA\LEVODOPA [Suspect]
     Active Substance: CARBIDOPA\LEVODOPA
     Indication: Parkinson^s disease
     Dosage: MD:  5.5, CR: 4.0, ED: 1.0 NIGHT 3.0, 20MGS/5MGS
     Route: 050
  2. CARBIDOPA\LEVODOPA [Suspect]
     Active Substance: CARBIDOPA\LEVODOPA
  3. BENSERAZIDE HYDROCHLORIDE\LEVODOPA [Concomitant]
     Active Substance: BENSERAZIDE HYDROCHLORIDE\LEVODOPA
     Indication: Product used for unknown indication
     Dosage: 12.5/50MG?FREQUENCY TEXT: 2 UP TO TWICE A DAY

REACTIONS (14)
  - Rectal haemorrhage [Recovering/Resolving]
  - Diarrhoea [Recovering/Resolving]
  - Abdominal pain upper [Recovering/Resolving]
  - Device dislocation [Not Recovered/Not Resolved]
  - Abdominal discomfort [Not Recovered/Not Resolved]
  - Hallucination, visual [Unknown]
  - Tearfulness [Unknown]
  - Weight decreased [Unknown]
  - Depressed mood [Unknown]
  - Therapeutic product effect incomplete [Unknown]
  - Fall [Unknown]
  - Muscle rigidity [Unknown]
  - On and off phenomenon [Unknown]
  - Parkinson^s disease [Unknown]
